FAERS Safety Report 4700226-3 (Version None)
Quarter: 2005Q2

REPORT INFORMATION
  Report Type: 
  Country: None (occurrence: None)
  Receive Date: 20050207
  Receipt Date: 20050207
  Transmission Date: 20051028
  Serious: No
  Sender: FDA-Public Use
  Company Number: None

PATIENT
  Sex: Female
  Weight: 74.8435 kg

DRUGS (3)
  1. WARFARIN [Suspect]
     Indication: AORTIC VALVE REPLACEMENT
     Dosage: BY MOUTH
     Route: 048
  2. WARFARIN [Suspect]
     Indication: CORONARY ARTERY DISEASE
     Dosage: BY MOUTH
     Route: 048
  3. WARFARIN [Suspect]
     Indication: MITRAL VALVE REPLACEMENT
     Dosage: BY MOUTH
     Route: 048

REACTIONS (3)
  - ASTHENIA [None]
  - THERAPEUTIC RESPONSE UNEXPECTED WITH DRUG SUBSTITUTION [None]
  - VISION BLURRED [None]
